FAERS Safety Report 7718126-3 (Version None)
Quarter: 2011Q3

REPORT INFORMATION
  Report Type: 
  Country: None (occurrence: None)
  Receive Date: 20110830
  Receipt Date: 20110823
  Transmission Date: 20111222
  Serious: Yes (Other)
  Sender: FDA-Public Use
  Company Number: CA-JNJFOC-20110810553

PATIENT
  Sex: Male

DRUGS (2)
  1. UNKNOWN MEDICATION [Concomitant]
     Route: 065
  2. INVEGA [Suspect]
     Indication: PRODUCT USED FOR UNKNOWN INDICATION
     Route: 065

REACTIONS (2)
  - BLOOD PROLACTIN INCREASED [None]
  - CYST [None]
